FAERS Safety Report 5207063-4 (Version None)
Quarter: 2007Q1

REPORT INFORMATION
  Report Type: 
  Country: None (occurrence: None)
  Receive Date: 20070112
  Receipt Date: 20070108
  Transmission Date: 20070707
  Serious: Yes (Death)
  Sender: FDA-Public Use
  Company Number: GB-JNJFOC-20070101964

PATIENT
  Sex: Male

DRUGS (2)
  1. DURAGESIC-50 [Suspect]
     Indication: PAIN
     Route: 062
  2. TRAMADOL HCL [Concomitant]
     Indication: PAIN
     Route: 065

REACTIONS (4)
  - CANDIDIASIS [None]
  - DEATH [None]
  - MOUTH ULCERATION [None]
  - PAIN [None]
